FAERS Safety Report 10697735 (Version 2)
Quarter: 2015Q1

REPORT INFORMATION
  Report Type: Spontaneous
  Country: US (occurrence: US)
  Receive Date: 20150108
  Receipt Date: 20150130
  Transmission Date: 20150721
  Serious: Yes (Hospitalization)
  Sender: FDA-Public Use
  Company Number: US-009507513-1501USA000860

PATIENT
  Age: 79 Year
  Sex: Female

DRUGS (1)
  1. TEMODAR [Suspect]
     Active Substance: TEMOZOLOMIDE
     Indication: NEOPLASM MALIGNANT
     Dosage: 400 MG, QD
     Route: 048
     Dates: start: 201412

REACTIONS (4)
  - Transfusion [Unknown]
  - Rash [Recovering/Resolving]
  - Abdominal distension [Recovering/Resolving]
  - Platelet transfusion [Unknown]
